FAERS Safety Report 6054589-X (Version None)
Quarter: 2009Q1

REPORT INFORMATION
  Report Type: 
  Country: None (occurrence: None)
  Receive Date: 20090127
  Receipt Date: 20090119
  Transmission Date: 20090719
  Serious: Yes (Death, Hospitalization)
  Sender: FDA-Public Use
  Company Number: DO-MERCK-0901USA03120

PATIENT
  Age: 49 Year
  Sex: Male

DRUGS (1)
  1. STROMECTOL [Suspect]
     Indication: ONCHOCERCIASIS
     Route: 048
     Dates: start: 20081107, end: 20081107

REACTIONS (5)
  - LOSS OF CONSCIOUSNESS [None]
  - MENINGITIS [None]
  - MUSCLE RIGIDITY [None]
  - NUCHAL RIGIDITY [None]
  - PYREXIA [None]
